FAERS Safety Report 7475752-7 (Version None)
Quarter: 2011Q2

REPORT INFORMATION
  Report Type: 
  Country: None (occurrence: None)
  Receive Date: 20110512
  Receipt Date: 20090804
  Transmission Date: 20111010
  Serious: Yes (Death)
  Sender: FDA-Public Use
  Company Number: PHHY2009MX32575

PATIENT
  Sex: Female

DRUGS (1)
  1. DIOVAN HCT [Suspect]
     Indication: HYPERTENSION
     Dosage: 3 DF, (160/12.5 MG ) PER DAY

REACTIONS (2)
  - INCORRECT DOSE ADMINISTERED [None]
  - DEATH [None]
